FAERS Safety Report 10006263 (Version 2)
Quarter: 2014Q3

REPORT INFORMATION
  Report Type: Spontaneous
  Country: US (occurrence: US)
  Receive Date: 20140313
  Receipt Date: 20140702
  Transmission Date: 20150326
  Serious: Yes (Hospitalization, Other)
  Sender: FDA-Public Use
  Company Number: US-NOVOPROD-402386

PATIENT
  Age: 62 Year
  Sex: Female
  Weight: 58.96 kg

DRUGS (6)
  1. VICTOZA [Suspect]
     Active Substance: LIRAGLUTIDE
     Indication: INSULIN RESISTANCE
     Dosage: 0.6 MG, QD
     Route: 058
     Dates: start: 20120323, end: 20120522
  2. VICTOZA [Suspect]
     Active Substance: LIRAGLUTIDE
     Indication: GLUCOSE TOLERANCE IMPAIRED
     Dosage: 0.6 MG, QD
     Route: 058
     Dates: start: 20120618, end: 20121223
  3. BYETTA [Suspect]
     Active Substance: EXENATIDE
     Indication: GLUCOSE TOLERANCE IMPAIRED
  4. BYETTA [Suspect]
     Active Substance: EXENATIDE
     Indication: INSULIN RESISTANCE
     Dosage: 10 ?G, BID
     Route: 058
     Dates: start: 20070223, end: 20070822
  5. METFORMIN [Concomitant]
     Active Substance: METFORMIN HYDROCHLORIDE
     Indication: GLUCOSE TOLERANCE IMPAIRED
  6. METFORMIN [Concomitant]
     Active Substance: METFORMIN HYDROCHLORIDE
     Indication: INSULIN RESISTANCE
     Route: 048

REACTIONS (1)
  - Pancreatic carcinoma [Unknown]

NARRATIVE: CASE EVENT DATE: 20130207
